FAERS Safety Report 18956039 (Version 1)
Quarter: 2021Q1

REPORT INFORMATION
  Report Type: Spontaneous
  Country: IQ (occurrence: IQ)
  Receive Date: 20210302
  Receipt Date: 20210302
  Transmission Date: 20210420
  Serious: Yes (Other)
  Sender: FDA-Public Use
  Company Number: IQ-LUPIN PHARMACEUTICALS INC.-2021-02485

PATIENT
  Age: 46 Year
  Sex: Male

DRUGS (5)
  1. VITAMIN D NOS [Concomitant]
     Active Substance: VITAMIN D NOS
     Indication: SYMPTOMATIC TREATMENT
     Dosage: 5000 INTERNATIONAL UNIT, QD
     Route: 065
     Dates: start: 202008
  2. ZINC. [Concomitant]
     Active Substance: ZINC
     Indication: SYMPTOMATIC TREATMENT
     Dosage: 50 MILLIGRAM, QD
     Route: 065
     Dates: start: 202008
  3. FAVIPIRAVIR [Suspect]
     Active Substance: FAVIPIRAVIR
     Indication: COVID-19
     Dosage: 800 MILLIGRAM, ON FIRST DAY
     Route: 048
     Dates: start: 202010
  4. FAVIPIRAVIR [Suspect]
     Active Substance: FAVIPIRAVIR
     Dosage: 600 MILLIGRAM, BID
     Route: 048
     Dates: start: 202010
  5. AZITHROMYCIN ANHYDROUS. [Suspect]
     Active Substance: AZITHROMYCIN ANHYDROUS
     Indication: COVID-19
     Dosage: 500 MILLIGRAM, QD
     Route: 048
     Dates: start: 202008

REACTIONS (1)
  - Off label use [Unknown]

NARRATIVE: CASE EVENT DATE: 2020
